FAERS Safety Report 4617536-0 (Version None)
Quarter: 2005Q1

REPORT INFORMATION
  Report Type: 
  Country: None (occurrence: None)
  Receive Date: 20050322
  Receipt Date: 20050306
  Transmission Date: 20050727
  Serious: Yes (Death, Other)
  Sender: FDA-Public Use
  Company Number: 2005042522

PATIENT
  Age: 50 Year
  Sex: Female

DRUGS (3)
  1. VORICONAZOLE (VORICONAZOLE) [Suspect]
     Indication: ANTIFUNGAL PROPHYLAXIS
  2. MYCOPHENOLATE MOFETIL (MYCOPHENOLATE MOFETIL) [Concomitant]
  3. METHYLPREDNISOLONE [Concomitant]

REACTIONS (10)
  - CATHETER SITE ERYTHEMA [None]
  - CULTURE STOOL POSITIVE [None]
  - GRAFT VERSUS HOST DISEASE [None]
  - LIVER FUNCTION TEST ABNORMAL [None]
  - NEUTROPENIA [None]
  - NODULE [None]
  - PLEURITIC PAIN [None]
  - PULMONARY EMBOLISM [None]
  - RASH [None]
  - ZYGOMYCOSIS [None]
